FAERS Safety Report 23590355 (Version 1)
Quarter: 2024Q1

REPORT INFORMATION
  Report Type: Spontaneous
  Country: US (occurrence: None)
  Receive Date: 20240301
  Receipt Date: 20240301
  Transmission Date: 20240409
  Serious: No
  Sender: FDA-Public Use
  Company Number: None

PATIENT
  Age: 77 Year
  Sex: 0

DRUGS (1)
  1. AMBRISENTAN [Suspect]
     Active Substance: AMBRISENTAN
     Indication: Pulmonary hypertension
     Dosage: FREQUENCY : DAILY;?
     Route: 048

REACTIONS (5)
  - Cough [None]
  - Nausea [None]
  - Dyspnoea exertional [None]
  - Memory impairment [None]
  - Product dose omission issue [None]

NARRATIVE: CASE EVENT DATE: 20240301
